FAERS Safety Report 4772435-9 (Version None)
Quarter: 2005Q3

REPORT INFORMATION
  Report Type: 
  Country: None (occurrence: None)
  Receive Date: 20050919
  Receipt Date: 20050812
  Transmission Date: 20060218
  Serious: Yes (Other)
  Sender: FDA-Public Use
  Company Number: PHFR2005GB02757

PATIENT
  Age: 25 Year
  Sex: Male

DRUGS (6)
  1. CLOZARIL [Suspect]
     Indication: SCHIZOPHRENIA
     Dosage: 300 MG/DAY
     Route: 048
     Dates: start: 20050722
  2. CLOZARIL [Suspect]
     Dosage: 400 MG/DAY
     Route: 048
  3. HALOPERIDOL [Concomitant]
     Indication: SCHIZOPHRENIA
     Dosage: 10 MG/DAY
     Route: 048
     Dates: start: 20050718
  4. PROCYCLIDINE HYDROCHLORIDE 2MG TAB [Concomitant]
     Indication: EXTRAPYRAMIDAL DISORDER
     Dosage: 10 MG/DAY
     Route: 048
     Dates: start: 20050726
  5. LORAZEPAM [Concomitant]
     Indication: AGITATION
     Dosage: 1-2 MG  MAX 4MG/24 HRS
     Route: 048
     Dates: start: 20050718
  6. LORAZEPAM [Concomitant]
     Dosage: 1-2 MG  MAX 4MG/24 HRS
     Route: 030

REACTIONS (3)
  - BLOOD CREATINE INCREASED [None]
  - ELECTROCARDIOGRAM QT PROLONGED [None]
  - SINUS TACHYCARDIA [None]
